FAERS Safety Report 5713065-1 (Version None)
Quarter: 2008Q2

REPORT INFORMATION
  Report Type: 
  Country: None (occurrence: None)
  Receive Date: 20080418
  Receipt Date: 20080402
  Transmission Date: 20081010
  Serious: Yes (Other)
  Sender: FDA-Public Use
  Company Number: 2008S1005570

PATIENT
  Age: 81 Year
  Sex: Female

DRUGS (6)
  1. ERYTHROMYCIN [Suspect]
     Indication: DRUG USE FOR UNKNOWN INDICATION
     Dosage: 250 MG; 4 TIMES A DAY
     Dates: start: 20070723, end: 20070723
  2. DOXAZOSIN (CON.) [Concomitant]
  3. EXEMESTANE (CON.) [Concomitant]
  4. FUROSEMIDE (CON.) [Concomitant]
  5. LOSARTAN (CON.) [Concomitant]
  6. TRAMADOL (CON.) [Concomitant]

REACTIONS (2)
  - HALLUCINATION [None]
  - SKIN DISCOLOURATION [None]
